FAERS Safety Report 9556037 (Version 1)
Quarter: 2013Q3

REPORT INFORMATION
  Report Type: Spontaneous
  Country: BR (occurrence: BR)
  Receive Date: 20130926
  Receipt Date: 20130926
  Transmission Date: 20140515
  Serious: Yes (Other)
  Sender: FDA-Public Use
  Company Number: BR-SANOFI-AVENTIS-2013SA093687

PATIENT
  Age: 41 Year
  Sex: Female
  Weight: 64 kg

DRUGS (6)
  1. LANTUS [Suspect]
     Indication: TYPE 1 DIABETES MELLITUS
     Route: 065
  2. SIILIF [Concomitant]
     Indication: GASTROINTESTINAL DISORDER
     Dosage: STRENGTH-100MG
     Route: 048
     Dates: start: 201209
  3. CALCIUM CITRATE [Concomitant]
     Indication: CALCIUM DEFICIENCY
     Dosage: STRENGTH-250MG
     Route: 048
     Dates: start: 201303
  4. NEXIUM [Concomitant]
     Indication: GASTRITIS
     Route: 048
     Dates: start: 2012
  5. PURAN T4 [Concomitant]
     Indication: THYROID DISORDER
     Dosage: STRENGTH-88MCG
     Route: 048
     Dates: start: 1993
  6. APIDRA [Concomitant]
     Indication: TYPE 1 DIABETES MELLITUS
     Dosage: DOSE-ACCORDING TO GLYCEMIA
     Dates: start: 2013

REACTIONS (16)
  - Uterine leiomyoma [Unknown]
  - Haemorrhage [Unknown]
  - Somnolence [Unknown]
  - Decreased interest [Unknown]
  - Influenza [Unknown]
  - Memory impairment [Unknown]
  - Pain in extremity [Recovering/Resolving]
  - Gastrointestinal disorder [Unknown]
  - Diarrhoea [Unknown]
  - Hyperchlorhydria [Unknown]
  - Nausea [Unknown]
  - Flatulence [Unknown]
  - Eructation [Unknown]
  - Fatigue [Not Recovered/Not Resolved]
  - Injection site haemorrhage [Not Recovered/Not Resolved]
  - Injection site mass [Not Recovered/Not Resolved]
